FAERS Safety Report 22697337 (Version 6)
Quarter: 2024Q3

REPORT INFORMATION
  Report Type: Spontaneous
  Country: US (occurrence: US)
  Receive Date: 20230712
  Receipt Date: 20240808
  Transmission Date: 20241017
  Serious: Yes (Other)
  Sender: PFIZER
  Company Number: US-PFIZER INC-PV202300121094

PATIENT
  Age: 80 Year
  Sex: Female

DRUGS (1)
  1. BOSULIF [Suspect]
     Active Substance: BOSUTINIB MONOHYDRATE
     Indication: Chronic myeloid leukaemia
     Dosage: 100 MG, 1X/DAY
     Route: 048

REACTIONS (3)
  - Dementia Alzheimer^s type [Unknown]
  - Dementia [Unknown]
  - Off label use [Unknown]
